FAERS Safety Report 8158615 (Version 2)
Quarter: 2012Q4

REPORT INFORMATION
  Report Type: 
  Country: US (occurrence: US)
  Receive Date: 20110927
  Receipt Date: 20121004
  Transmission Date: 20130627
  Serious: No
  Sender: FDA-Public Use
  Company Number: US-BRACCO-006828

PATIENT
  Age: 78 Year
  Sex: Female

DRUGS (1)
  1. CARDIOGEN-82 [Suspect]
     Indication: POSITRON EMISSION TOMOGRAM
     Dates: start: 20110506, end: 20110506

REACTIONS (3)
  - Exposure to radiation [Unknown]
  - Device malfunction [None]
  - Product quality issue [None]
